FAERS Safety Report 12402077 (Version 7)
Quarter: 2017Q1

REPORT INFORMATION
  Report Type: Spontaneous
  Country: US (occurrence: US)
  Receive Date: 20160525
  Receipt Date: 20170327
  Transmission Date: 20170428
  Serious: Yes (Other)
  Sender: FDA-Public Use
  Company Number: US-TEVA-661010USA

PATIENT
  Sex: Female
  Weight: 52.66 kg

DRUGS (13)
  1. COPAXONE [Suspect]
     Active Substance: GLATIRAMER ACETATE
     Dosage: 20 MILLIGRAM DAILY;
     Route: 058
  2. NEURONTIN [Concomitant]
     Active Substance: GABAPENTIN
  3. COPAXONE [Suspect]
     Active Substance: GLATIRAMER ACETATE
     Dosage: 10 MILLIGRAM DAILY;
     Route: 058
  4. TROSPIUM CHLORIDE. [Concomitant]
     Active Substance: TROSPIUM CHLORIDE
     Indication: BLADDER DISORDER
  5. SYNTHROID [Concomitant]
     Active Substance: LEVOTHYROXINE SODIUM
     Indication: HYPOTHYROIDISM
  6. DIAZEPAM. [Concomitant]
     Active Substance: DIAZEPAM
  7. METOPROLOL. [Concomitant]
     Active Substance: METOPROLOL
     Indication: ARRHYTHMIA
  8. TROSPIUM CHLORIDE. [Concomitant]
     Active Substance: TROSPIUM CHLORIDE
     Indication: POLLAKIURIA
  9. NORCO [Concomitant]
     Active Substance: ACETAMINOPHEN\HYDROCODONE BITARTRATE
     Indication: PAIN
  10. ACTONEL [Concomitant]
     Active Substance: RISEDRONATE SODIUM
  11. COPAXONE [Suspect]
     Active Substance: GLATIRAMER ACETATE
     Route: 058
     Dates: start: 201612
  12. COPAXONE [Suspect]
     Active Substance: GLATIRAMER ACETATE
     Indication: MULTIPLE SCLEROSIS
     Route: 058
     Dates: start: 1997, end: 2014
  13. LANTUS [Concomitant]
     Active Substance: INSULIN GLARGINE

REACTIONS (21)
  - Seizure [Recovering/Resolving]
  - Fear [Not Recovered/Not Resolved]
  - Tremor [Unknown]
  - Urticaria [Not Recovered/Not Resolved]
  - Burning sensation [Unknown]
  - Anaphylactic shock [Unknown]
  - Product tampering [Unknown]
  - Rash [Not Recovered/Not Resolved]
  - Pruritus [Not Recovered/Not Resolved]
  - Immediate post-injection reaction [Unknown]
  - Dyspnoea [Unknown]
  - Rash macular [Unknown]
  - Antiphospholipid syndrome [Recovered/Resolved]
  - Feeling cold [Unknown]
  - Anaphylactic reaction [Unknown]
  - Loss of consciousness [Recovered/Resolved]
  - Paraesthesia [Unknown]
  - Weight decreased [Recovered/Resolved]
  - Dyspnoea [Recovered/Resolved]
  - Adverse event [Recovered/Resolved]
  - Allergy to metals [Unknown]

NARRATIVE: CASE EVENT DATE: 2013
